FAERS Safety Report 25289729 (Version 1)
Quarter: 2025Q2

REPORT INFORMATION
  Report Type: Spontaneous
  Country: NZ (occurrence: NZ)
  Receive Date: 20250509
  Receipt Date: 20250509
  Transmission Date: 20250716
  Serious: Yes (Death)
  Sender: MYLAN
  Company Number: NZ-MYLANLABS-2025M1039661

PATIENT
  Sex: Male

DRUGS (5)
  1. CLOZARIL [Suspect]
     Active Substance: CLOZAPINE
     Indication: Schizophrenia
     Dates: start: 20160427, end: 20250430
  2. MIDAZOLAM [Concomitant]
     Active Substance: MIDAZOLAM
  3. MORPHINE [Concomitant]
     Active Substance: MORPHINE
  4. SCOPOLAMINE [Concomitant]
     Active Substance: SCOPOLAMINE
  5. HALOPERIDOL [Concomitant]
     Active Substance: HALOPERIDOL

REACTIONS (1)
  - Dementia [Fatal]
